FAERS Safety Report 14187489 (Version 1)
Quarter: 2017Q4

REPORT INFORMATION
  Report Type: Spontaneous
  Country: US (occurrence: US)
  Receive Date: 20171113
  Receipt Date: 20171113
  Transmission Date: 20180321
  Serious: Yes (Other)
  Sender: FDA-Public Use
  Company Number: None

PATIENT
  Weight: 76.5 kg

DRUGS (1)
  1. FLUCONAZOLE 150 MG [Suspect]
     Active Substance: FLUCONAZOLE
     Indication: FUNGAL INFECTION
     Dosage: ?          QUANTITY:1 TABLET(S);OTHER FREQUENCY:ONCE;?
     Route: 048
     Dates: start: 20171106, end: 20171106

REACTIONS (6)
  - Burning sensation [None]
  - Blister [None]
  - Scab [None]
  - Skin hyperpigmentation [None]
  - Skin erosion [None]
  - Scar [None]

NARRATIVE: CASE EVENT DATE: 20171106
